FAERS Safety Report 9055608 (Version 3)
Quarter: 2014Q1

REPORT INFORMATION
  Report Type: Spontaneous
  Country: FR (occurrence: FR)
  Receive Date: 20130206
  Receipt Date: 20140227
  Transmission Date: 20141002
  Serious: Yes (Hospitalization, Other)
  Sender: FDA-Public Use
  Company Number: FR-UCBSA-076588

PATIENT
  Age: 67 Year
  Sex: Female

DRUGS (11)
  1. CIMZIA [Suspect]
     Indication: RHEUMATOID ARTHRITIS
     Route: 058
     Dates: start: 20121212, end: 20130112
  2. METHOTREXATE [Suspect]
     Indication: RHEUMATOID ARTHRITIS
     Dates: start: 201208, end: 20130112
  3. METHOTREXATE [Suspect]
     Indication: RHEUMATOID ARTHRITIS
     Dates: start: 2012, end: 201208
  4. PRAVASTATINE [Concomitant]
     Dosage: 40 MG
  5. METFORMINE [Concomitant]
     Dosage: 3 GRAM DAILY
     Dates: end: 20130112
  6. GLICLAZIDE LP [Concomitant]
     Dosage: 30 MG 3 DAILY IN THE MORNING
     Dates: end: 20130112
  7. BIPRETERAX [Concomitant]
     Dosage: 10 MG DAILY
     Dates: end: 20130112
  8. CEBUTID [Concomitant]
     Indication: RHEUMATOID ARTHRITIS
     Dosage: UNKNOWN DOSE
     Dates: start: 2012, end: 20121212
  9. LERCAN [Concomitant]
     Dosage: 10 MG DAILY
  10. SPECIAFOLDINE [Concomitant]
     Indication: RHEUMATOID ARTHRITIS
     Dosage: UNKNOWN DOSE
     Dates: start: 2012, end: 20130112
  11. LAMALINE [Concomitant]
     Indication: RHEUMATOID ARTHRITIS
     Dosage: UNKNOWN DOSE
     Dates: start: 2012, end: 20130112

REACTIONS (6)
  - Renal failure acute [Recovered/Resolved]
  - Cholestasis [Not Recovered/Not Resolved]
  - Stomatitis [Recovering/Resolving]
  - Diarrhoea [Recovered/Resolved]
  - Dehydration [Unknown]
  - Decreased appetite [Unknown]
